FAERS Safety Report 8557311-8 (Version None)
Quarter: 2012Q3

REPORT INFORMATION
  Report Type: 
  Country: None (occurrence: None)
  Receive Date: 20120801
  Receipt Date: 20120727
  Transmission Date: 20120928
  Serious: Yes (Hospitalization, Other)
  Sender: FDA-Public Use
  Company Number: BR-PFIZER INC-2012182574

PATIENT
  Age: 47 Year
  Sex: Female
  Weight: 72 kg

DRUGS (4)
  1. PHENYTOIN [Concomitant]
     Dosage: 2 TABLETS DAILY
     Dates: start: 20110101
  2. ALPRAZOLAM [Suspect]
     Indication: DEPRESSION
     Dosage: 0.25 MG, 1X/DAY
     Route: 048
     Dates: start: 20060627, end: 20120601
  3. ALPRAZOLAM [Suspect]
     Dosage: UNK (STRENGTH 1MG)
     Route: 048
     Dates: start: 20120601
  4. SCOPOLAMINE [Concomitant]
     Indication: PAIN
     Dosage: 20 DROPS DAILY

REACTIONS (2)
  - CEREBROVASCULAR ACCIDENT [None]
  - DRUG INEFFECTIVE [None]
